FAERS Safety Report 21730103 (Version 2)
Quarter: 2023Q1

REPORT INFORMATION
  Report Type: Report from Study
  Country: US (occurrence: US)
  Receive Date: 20221214
  Receipt Date: 20230324
  Transmission Date: 20230417
  Serious: Yes (Other)
  Sender: FDA-Public Use
  Company Number: US-ABBVIE-4235492

PATIENT
  Age: 64 Year
  Sex: Female

DRUGS (1)
  1. SKYRIZI [Suspect]
     Active Substance: RISANKIZUMAB-RZAA
     Indication: Psoriatic arthropathy
     Route: 058
     Dates: start: 20220426

REACTIONS (8)
  - Spinal operation [Not Recovered/Not Resolved]
  - Psoriatic arthropathy [Not Recovered/Not Resolved]
  - Memory impairment [Not Recovered/Not Resolved]
  - Skin haemorrhage [Not Recovered/Not Resolved]
  - Spinal stenosis [Recovering/Resolving]
  - Scratch [Not Recovered/Not Resolved]
  - Pruritus [Not Recovered/Not Resolved]
  - Calcinosis [Unknown]

NARRATIVE: CASE EVENT DATE: 20230214
